FAERS Safety Report 25752063 (Version 1)
Quarter: 2025Q3

REPORT INFORMATION
  Report Type: Spontaneous
  Country: JP (occurrence: JP)
  Receive Date: 20250902
  Receipt Date: 20250902
  Transmission Date: 20251020
  Serious: Yes (Other)
  Sender: PFIZER
  Company Number: JP-PFIZER INC-PV202500103611

PATIENT
  Age: 57 Year
  Sex: Female

DRUGS (1)
  1. CORTRIL [Suspect]
     Active Substance: HYDROCORTISONE
     Dates: start: 202204

REACTIONS (2)
  - Cerebral venous sinus thrombosis [Unknown]
  - Haemorrhagic cerebral infarction [Unknown]
